FAERS Safety Report 20343835 (Version 1)
Quarter: 2022Q1

REPORT INFORMATION
  Report Type: Report from Study
  Country: AT (occurrence: AT)
  Receive Date: 20220118
  Receipt Date: 20220118
  Transmission Date: 20220423
  Serious: Yes (Other)
  Sender: FDA-Public Use
  Company Number: AT-ABBVIE-22K-009-4236296-00

PATIENT
  Sex: Female

DRUGS (1)
  1. HUMIRA [Suspect]
     Active Substance: ADALIMUMAB
     Indication: Crohn^s disease
     Route: 058
     Dates: start: 2006

REACTIONS (9)
  - Depression suicidal [Not Recovered/Not Resolved]
  - Malaise [Not Recovered/Not Resolved]
  - Fistula [Unknown]
  - Dizziness [Not Recovered/Not Resolved]
  - Hand fracture [Not Recovered/Not Resolved]
  - Accident [Not Recovered/Not Resolved]
  - Impaired quality of life [Not Recovered/Not Resolved]
  - Depression [Not Recovered/Not Resolved]
  - Pain [Not Recovered/Not Resolved]

NARRATIVE: CASE EVENT DATE: 20210101
